FAERS Safety Report 8675893 (Version 2)
Quarter: 2012Q4

REPORT INFORMATION
  Report Type: 
  Country: BR (occurrence: BR)
  Receive Date: 20120720
  Receipt Date: 20120828
  Transmission Date: 20130627
  Serious: Yes (Other)
  Sender: FDA-Public Use
  Company Number: PHHY2012BR061800

PATIENT
  Sex: Male

DRUGS (3)
  1. RITALINA [Suspect]
     Indication: ATTENTION DEFICIT/HYPERACTIVITY DISORDER
     Dosage: 3 DF, a day
     Route: 048
  2. RITALINA [Suspect]
     Dosage: 1 DF, daily (takes only 1 tablet instead of 3)
     Route: 048
  3. RITALIN LA [Suspect]
     Indication: ATTENTION DEFICIT/HYPERACTIVITY DISORDER
     Dosage: 1 DF, a day
     Route: 048

REACTIONS (6)
  - Attention deficit/hyperactivity disorder [Not Recovered/Not Resolved]
  - Distractibility [Unknown]
  - Disturbance in attention [Unknown]
  - Emotional disorder of childhood [Recovered/Resolved]
  - Aggression [Recovered/Resolved]
  - Incorrect dose administered [Unknown]
